FAERS Safety Report 17644259 (Version 8)
Quarter: 2021Q1

REPORT INFORMATION
  Report Type: Spontaneous
  Country: US (occurrence: US)
  Receive Date: 20200408
  Receipt Date: 20210322
  Transmission Date: 20210419
  Serious: No
  Sender: FDA-Public Use
  Company Number: US-PFIZER INC-2020140367

PATIENT
  Age: 49 Year
  Sex: Female

DRUGS (3)
  1. TALZENNA [Suspect]
     Active Substance: TALAZOPARIB TOSYLATE
     Dosage: 1 MG, 1X/DAY IN THE EVENING
  2. TALZENNA [Suspect]
     Active Substance: TALAZOPARIB TOSYLATE
     Indication: BREAST CANCER FEMALE
     Dosage: 1 MG, 1X/DAY (EVERY PM WITH FOOD / 1 MG DAILY)
     Dates: start: 20200303
  3. TALZENNA [Suspect]
     Active Substance: TALAZOPARIB TOSYLATE
     Dosage: 1 MG, 1X/DAY (EVERY AM WITH FOOD)

REACTIONS (5)
  - Dyspepsia [Recovering/Resolving]
  - Product dose omission issue [Unknown]
  - Pain [Recovered/Resolved]
  - Fatigue [Unknown]
  - Diarrhoea [Unknown]
